FAERS Safety Report 23427535 (Version 2)
Quarter: 2024Q4

REPORT INFORMATION
  Report Type: Spontaneous
  Country: US (occurrence: US)
  Receive Date: 20240122
  Receipt Date: 20241205
  Transmission Date: 20250115
  Serious: Yes (Other)
  Sender: ALIMERA
  Company Number: US-ALIMERA SCIENCES INC.-US-A16013-23-001162

PATIENT
  Age: 80 Year
  Sex: Female

DRUGS (1)
  1. YUTIQ [Suspect]
     Active Substance: FLUOCINOLONE ACETONIDE
     Indication: Birdshot chorioretinopathy
     Dosage: 0.18 MILLIGRAM, SINGLE, -BOTH EYES
     Route: 031

REACTIONS (2)
  - Intraocular pressure increased [Unknown]
  - Trabeculectomy [Recovered/Resolved]
